FAERS Safety Report 7586178-X (Version None)
Quarter: 2011Q2

REPORT INFORMATION
  Report Type: 
  Country: None (occurrence: None)
  Receive Date: 20110624
  Receipt Date: 20110610
  Transmission Date: 20111010
  Serious: Yes (Other)
  Sender: FDA-Public Use
  Company Number: 2009-200707-NL

PATIENT
  Sex: Male

DRUGS (3)
  1. VINCRISTINE [Suspect]
     Indication: PRODUCT USED FOR UNKNOWN INDICATION
     Dosage: QM
  2. PEGYLATED E. COLI ASPARAGINASE (PEGASPARGASE) [Suspect]
     Indication: PRODUCT USED FOR UNKNOWN INDICATION
  3. DEXAMETHASONE [Suspect]
     Indication: PRODUCT USED FOR UNKNOWN INDICATION
     Dosage: QM

REACTIONS (1)
  - THROMBOSIS [None]
